FAERS Safety Report 5420882-4 (Version None)
Quarter: 2007Q3

REPORT INFORMATION
  Report Type: 
  Country: None (occurrence: None)
  Receive Date: 20070817
  Receipt Date: 20070817
  Transmission Date: 20080115
  Serious: Yes (Other)
  Sender: FDA-Public Use
  Company Number: None

PATIENT
  Sex: Male
  Weight: 78.63 kg

DRUGS (1)
  1. FLUPHENAZINE [Suspect]
     Indication: SCHIZOPHRENIA
     Dosage: 15 MG/DAY
     Dates: start: 20070807, end: 20070807

REACTIONS (3)
  - PARANOIA [None]
  - REFUSAL OF TREATMENT BY PATIENT [None]
  - TRISMUS [None]
